FAERS Safety Report 7496488-2 (Version None)
Quarter: 2011Q2

REPORT INFORMATION
  Report Type: 
  Country: None (occurrence: None)
  Receive Date: 20110523
  Receipt Date: 20110518
  Transmission Date: 20111010
  Serious: Yes (Hospitalization)
  Sender: FDA-Public Use
  Company Number: CA-ROCHE-770163

PATIENT
  Sex: Female

DRUGS (10)
  1. NEXIUM [Concomitant]
  2. ALENDRONATE SODIUM [Concomitant]
     Dosage: DRUG REPORTED AS ALENDRONATE
  3. SYMBICORT [Concomitant]
  4. TOCILIZUMAB [Suspect]
     Indication: RHEUMATOID ARTHRITIS
     Route: 042
     Dates: start: 20101201
  5. PLAQUENIL [Concomitant]
  6. ASPIRIN [Concomitant]
  7. CRESTOR [Concomitant]
  8. ATIVAN [Concomitant]
  9. CORTISONE ACETATE [Concomitant]
  10. FUROSEMIDE [Concomitant]

REACTIONS (3)
  - ANAEMIA [None]
  - ECCHYMOSIS [None]
  - ACUTE PULMONARY OEDEMA [None]
